FAERS Safety Report 4654038-X (Version None)
Quarter: 2005Q2

REPORT INFORMATION
  Report Type: 
  Country: None (occurrence: None)
  Receive Date: 20050504
  Receipt Date: 20050419
  Transmission Date: 20051028
  Serious: Yes (Hospitalization)
  Sender: FDA-Public Use
  Company Number: CA-SHR-03-008391

PATIENT
  Age: 58 Year

DRUGS (7)
  1. BETASERON [Suspect]
     Indication: MULTIPLE SCLEROSIS
     Dosage: 8 IU, EVERY 2 D, SUBCUTANEOUS
     Route: 058
     Dates: start: 19970719
  2. COLACE (DOCUSATE SODIUM) [Concomitant]
  3. METOPROLOL TARTRATE [Concomitant]
  4. RAMIPRIL [Concomitant]
  5. ACETYLSALICYLIC ACID SRT [Concomitant]
  6. LIPITOR [Concomitant]
  7. LEVOTHYROXINE SODIUM [Concomitant]

REACTIONS (11)
  - ABNORMAL BEHAVIOUR [None]
  - AGITATION POSTOPERATIVE [None]
  - AMNESIA [None]
  - AORTIC ANEURYSM [None]
  - DRUG INTERACTION [None]
  - DYSGEUSIA [None]
  - GASTROINTESTINAL DISORDER [None]
  - NONSPECIFIC REACTION [None]
  - ORAL FUNGAL INFECTION [None]
  - POST PROCEDURAL COMPLICATION [None]
  - WEIGHT DECREASED [None]
